FAERS Safety Report 7493972-2 (Version None)
Quarter: 2011Q2

REPORT INFORMATION
  Report Type: 
  Country: None (occurrence: None)
  Receive Date: 20110520
  Receipt Date: 20110512
  Transmission Date: 20111010
  Serious: Yes (Other)
  Sender: FDA-Public Use
  Company Number: GB-ROCHE-777475

PATIENT
  Sex: Female
  Weight: 73.8 kg

DRUGS (12)
  1. DOCETAXEL [Suspect]
     Route: 042
     Dates: start: 20110216
  2. RATIOGRASTIM [Concomitant]
     Indication: PREMEDICATION
  3. FLUCONAZOLE [Concomitant]
     Indication: PREMEDICATION
     Dosage: GIVEN WITH CYCLE 2
  4. HERCEPTIN [Suspect]
     Dosage: FIRST DOSE (CYCLE 1)
     Route: 042
     Dates: start: 20110215
  5. FLUOROURACIL [Concomitant]
     Route: 040
  6. EPIRUBICIN [Concomitant]
     Route: 040
  7. DEXAMETHASONE [Concomitant]
     Indication: PREMEDICATION
  8. PEG-FILGRASTIM [Concomitant]
     Indication: PREMEDICATION
  9. CYCLOPHOSPHAMIDE [Concomitant]
     Route: 040
  10. HERCEPTIN [Suspect]
     Dosage: CYCLE 2 (6MG/KG)
     Route: 042
     Dates: start: 20110309
  11. DEXAMETHASONE [Concomitant]
     Dosage: MODIFIED DOSE PREMEDICATION (CYCLE 2)
  12. FLUCONAZOLE [Concomitant]

REACTIONS (9)
  - DRUG HYPERSENSITIVITY [None]
  - CANDIDIASIS [None]
  - OEDEMA PERIPHERAL [None]
  - MYALGIA [None]
  - SKIN EXFOLIATION [None]
  - NEUTROPENIC SEPSIS [None]
  - EYE DISCHARGE [None]
  - SWELLING FACE [None]
  - RASH [None]
